FAERS Safety Report 19292952 (Version 2)
Quarter: 2021Q2

REPORT INFORMATION
  Report Type: Spontaneous
  Country: JP (occurrence: JP)
  Receive Date: 20210524
  Receipt Date: 20210610
  Transmission Date: 20210717
  Serious: Yes (Other)
  Sender: FDA-Public Use
  Company Number: NVSJ2021JP007354

PATIENT
  Age: 80 Year
  Sex: Male

DRUGS (3)
  1. PISULCIN [Concomitant]
     Active Substance: AMPICILLIN SODIUM\SULBACTAM SODIUM
     Indication: PRODUCT USED FOR UNKNOWN INDICATION
     Dosage: UNK
     Route: 065
  2. NEORAL [Suspect]
     Active Substance: CYCLOSPORINE
     Indication: INTERSTITIAL LUNG DISEASE
     Dosage: UNK
     Route: 048
     Dates: start: 20210508
  3. NEORAL [Suspect]
     Active Substance: CYCLOSPORINE

REACTIONS (3)
  - Oral administration complication [Recovered/Resolved]
  - Aggression [Recovered/Resolved]
  - Delirium [Recovered/Resolved]

NARRATIVE: CASE EVENT DATE: 20210511
